FAERS Safety Report 4999037-3 (Version None)
Quarter: 2006Q2

REPORT INFORMATION
  Report Type: 
  Country: None (occurrence: None)
  Receive Date: 20060509
  Receipt Date: 20060418
  Transmission Date: 20061013
  Serious: Yes (Hospitalization, Other)
  Sender: FDA-Public Use
  Company Number: US200604003041

PATIENT
  Sex: Female

DRUGS (5)
  1. FORTEO [Suspect]
     Indication: OSTEOPOROSIS
     Dosage: 20 UG
     Dates: start: 20060126, end: 20060204
  2. TRAMADOL HCL [Concomitant]
  3. ZOMETA [Concomitant]
  4. ALBUTEROL [Concomitant]
  5. COUMADIN [Concomitant]

REACTIONS (10)
  - CEREBROVASCULAR ACCIDENT [None]
  - COMA [None]
  - DYSPNOEA [None]
  - FATIGUE [None]
  - HEPATIC MASS [None]
  - HEPATIC NEOPLASM [None]
  - INJECTION SITE BRUISING [None]
  - LOSS OF CONSCIOUSNESS [None]
  - PAIN [None]
  - PHARMACEUTICAL PRODUCT COMPLAINT [None]
